FAERS Safety Report 15132822 (Version 1)
Quarter: 2018Q3

REPORT INFORMATION
  Report Type: Spontaneous
  Country: DE (occurrence: DE)
  Receive Date: 20180712
  Receipt Date: 20180712
  Transmission Date: 20181010
  Serious: Yes (Hospitalization)
  Sender: FDA-Public Use
  Company Number: DE-TEVA-2018-DE-924277

PATIENT
  Age: 58 Year
  Sex: Male

DRUGS (8)
  1. MILNACIPRAN [Concomitant]
     Active Substance: MILNACIPRAN
     Dosage: 100 MILLIGRAM DAILY;
     Route: 048
     Dates: start: 201712, end: 20180322
  2. MELPERON [Concomitant]
     Active Substance: MELPERONE
     Dosage: 100 MILLIGRAM DAILY; INCOME FOR ABOUT 1 YEAR
     Route: 048
  3. RAMIPRIL. [Concomitant]
     Active Substance: RAMIPRIL
     Dosage: 5 MILLIGRAM DAILY; INCOME FOR ABOUT 1 YEAR
     Route: 048
  4. FUROSEMID [Concomitant]
     Active Substance: FUROSEMIDE
     Dosage: 40 MILLIGRAM DAILY; INCOME FOR ABOUT 1 YEAR
     Route: 048
  5. SALBUTAMOL [Concomitant]
     Active Substance: ALBUTEROL
     Dosage: 100 MICROGRAM DAILY; INCOME FOR ABOUT 1 YEAR
     Route: 048
  6. L?THYROXIN [Concomitant]
     Active Substance: LEVOTHYROXINE SODIUM
     Dosage: 50 MICROGRAM DAILY; INCOME FOR ABOUT 1 YEAR
     Route: 048
  7. PANTOPRAZOL [Concomitant]
     Active Substance: PANTOPRAZOLE SODIUM
     Dosage: 20 MILLIGRAM DAILY; INCOME FOR ABOUT 1 YEAR
     Route: 048
  8. MIRTAZAPINE. [Suspect]
     Active Substance: MIRTAZAPINE
     Dosage: 15 MILLIGRAM DAILY;
     Route: 048
     Dates: start: 20180227, end: 20180313

REACTIONS (2)
  - Nightmare [Unknown]
  - Alcoholism [Recovered/Resolved]

NARRATIVE: CASE EVENT DATE: 20180306
